FAERS Safety Report 12292735 (Version 1)
Quarter: 2016Q2

REPORT INFORMATION
  Report Type: Report from Study
  Country: US (occurrence: US)
  Receive Date: 20160421
  Receipt Date: 20160421
  Transmission Date: 20160815
  Serious: No
  Sender: FDA-Public Use
  Company Number: US-AMGEN-USASL2015126571

PATIENT
  Age: 64 Year
  Sex: Male

DRUGS (7)
  1. EFFIENT [Concomitant]
     Active Substance: PRASUGREL HYDROCHLORIDE
  2. REPATHA [Suspect]
     Active Substance: EVOLOCUMAB
     Indication: HYPERCHOLESTEROLAEMIA
     Dosage: 140 MG, Q2WK
     Route: 065
     Dates: start: 201509
  3. TESTOSTERONE. [Concomitant]
     Active Substance: TESTOSTERONE
  4. VITAMIN B12 [Concomitant]
     Active Substance: CYANOCOBALAMIN
  5. ARMODAFINIL. [Concomitant]
     Active Substance: ARMODAFINIL
  6. PRASUGREL [Concomitant]
     Active Substance: PRASUGREL
  7. NUVIGIL [Concomitant]
     Active Substance: ARMODAFINIL
     Dosage: 150 MG, UNK

REACTIONS (9)
  - Sinusitis [Recovered/Resolved]
  - Muscle spasms [Not Recovered/Not Resolved]
  - Weight increased [Unknown]
  - Hypoaesthesia [Unknown]
  - Amnesia [Unknown]
  - Paraesthesia [Unknown]
  - Feeling abnormal [Unknown]
  - Injection site discolouration [Not Recovered/Not Resolved]
  - Diarrhoea [Not Recovered/Not Resolved]

NARRATIVE: CASE EVENT DATE: 201509
